FAERS Safety Report 7515767-3 (Version None)
Quarter: 2011Q2

REPORT INFORMATION
  Report Type: 
  Country: None (occurrence: None)
  Receive Date: 20110601
  Receipt Date: 20110527
  Transmission Date: 20111010
  Serious: Yes (Hospitalization)
  Sender: FDA-Public Use
  Company Number: JP-B.I. PHARMACEUTICALS,INC./RIDGEFIELD-2011-BP-14025NB

PATIENT
  Age: 73 Year
  Sex: Male
  Weight: 57 kg

DRUGS (4)
  1. PRADAXA [Suspect]
     Indication: ATRIAL FIBRILLATION
     Dosage: 300 MG
     Route: 048
  2. SPIRONOLACTONE [Concomitant]
     Route: 065
  3. DIGOXIN [Concomitant]
     Route: 065
  4. FUROSEMIDE [Concomitant]
     Route: 065

REACTIONS (3)
  - CEREBRAL INFARCTION [None]
  - ABDOMINAL DISCOMFORT [None]
  - CHEST PAIN [None]
